FAERS Safety Report 10692608 (Version 1)
Quarter: 2015Q1

REPORT INFORMATION
  Report Type: Spontaneous
  Country: US (occurrence: None)
  Receive Date: 20150105
  Receipt Date: 20150105
  Transmission Date: 20150720
  Serious: Yes (Death, Life-Threatening)
  Sender: FDA-Public Use
  Company Number: None

PATIENT
  Age: 31 Year
  Sex: Male
  Weight: 92.53 kg

DRUGS (1)
  1. METHADONE [Suspect]
     Active Substance: METHADONE HYDROCHLORIDE
     Indication: REVERSAL OF OPIATE ACTIVITY
     Dosage: LIQUID, ONCE DAILY, TAKEN BY MOUTH
     Route: 048
     Dates: start: 20120626, end: 20120701

REACTIONS (2)
  - Lethargy [None]
  - Overdose [None]

NARRATIVE: CASE EVENT DATE: 20120702
